FAERS Safety Report 25045905 (Version 1)
Quarter: 2025Q1

REPORT INFORMATION
  Report Type: Spontaneous
  Country: US (occurrence: None)
  Receive Date: 20250305
  Receipt Date: 20250305
  Transmission Date: 20250408
  Serious: Yes (Other)
  Sender: FDA-CTU
  Company Number: None

PATIENT
  Age: 22 Year
  Sex: Female
  Weight: 68.4 kg

DRUGS (1)
  1. MEDROXYPROGESTERONE ACETATE [Suspect]
     Active Substance: MEDROXYPROGESTERONE ACETATE
     Indication: Injectable contraception
     Route: 058
     Dates: start: 20241112, end: 20250305

REACTIONS (2)
  - Pregnancy with injectable contraceptive [None]
  - Treatment failure [None]

NARRATIVE: CASE EVENT DATE: 20250305
